FAERS Safety Report 4811617-4 (Version None)
Quarter: 2005Q4

REPORT INFORMATION
  Report Type: 
  Country: None (occurrence: None)
  Receive Date: 20051027
  Receipt Date: 20050203
  Transmission Date: 20060501
  Serious: Yes (Death, Hospitalization, Other)
  Sender: FDA-Public Use
  Company Number: US-MERCK-0502USA00420

PATIENT
  Age: 86 Year
  Sex: Male

DRUGS (17)
  1. VIOXX [Suspect]
     Indication: ARTHRITIS
     Route: 048
  2. VIOXX [Suspect]
     Route: 048
     Dates: start: 20040501
  3. LANOXIN [Concomitant]
     Route: 065
  4. DYAZIDE [Concomitant]
     Route: 065
  5. K-TAB [Concomitant]
     Route: 065
  6. PROSCAR [Concomitant]
     Route: 065
  7. NITROGLYCERIN [Concomitant]
     Route: 065
  8. COUMADIN [Concomitant]
     Route: 065
  9. LOMOTIL [Concomitant]
     Route: 065
  10. POTASSIUM (UNSPECIFIED) [Concomitant]
     Route: 065
  11. MAGNESIUM (UNSPECIFIED) [Concomitant]
     Route: 065
  12. TENORMIN [Concomitant]
     Route: 065
  13. IRON (UNSPECIFIED) [Concomitant]
     Route: 065
  14. VITAMINS (UNSPECIFIED) [Concomitant]
     Route: 065
  15. HYTRIN [Concomitant]
     Route: 065
  16. ASPIRIN [Concomitant]
     Route: 065
  17. LACTAID CAPLETS [Concomitant]
     Route: 065

REACTIONS (15)
  - ARTERIAL THROMBOSIS LIMB [None]
  - BENIGN PROSTATIC HYPERPLASIA [None]
  - CEREBROVASCULAR ACCIDENT [None]
  - CEREBROVASCULAR DISORDER [None]
  - CROHN'S DISEASE [None]
  - DEMENTIA ALZHEIMER'S TYPE [None]
  - ENTERITIS [None]
  - HYPOKALAEMIA [None]
  - HYPOTENSION [None]
  - ILEITIS [None]
  - LACTOSE INTOLERANCE [None]
  - PNEUMONIA [None]
  - SMALL INTESTINAL OBSTRUCTION [None]
  - THROMBOPHLEBITIS SUPERFICIAL [None]
  - WHIPLASH INJURY [None]
